FAERS Safety Report 5143136-2 (Version None)
Quarter: 2006Q4

REPORT INFORMATION
  Report Type: 
  Country: None (occurrence: None)
  Receive Date: 20061031
  Receipt Date: 20061031
  Transmission Date: 20070319
  Serious: Yes (Other)
  Sender: FDA-Public Use
  Company Number: None

PATIENT
  Age: 67 Year
  Sex: Male
  Weight: 69.4003 kg

DRUGS (1)
  1. TAXOTERE [Suspect]
     Indication: LUNG NEOPLASM MALIGNANT
     Dosage: 110   EVERY 3 WEEKS   IV
     Route: 042
     Dates: start: 20060918, end: 20060930

REACTIONS (2)
  - BACK PAIN [None]
  - DYSPNOEA [None]
